FAERS Safety Report 10418308 (Version 3)
Quarter: 2015Q3

REPORT INFORMATION
  Report Type: Spontaneous
  Country: US (occurrence: None)
  Receive Date: 20140827
  Receipt Date: 20150812
  Transmission Date: 20151125
  Serious: Yes (Hospitalization, Other)
  Sender: FDA-Public Use
  Company Number: ADR-2014-01509

PATIENT
  Age: 52 Year
  Sex: Male

DRUGS (8)
  1. LIORESAL [Suspect]
     Active Substance: BACLOFEN
     Indication: MUSCLE SPASTICITY
  2. GLIPIZIDE. [Suspect]
     Active Substance: GLIPIZIDE
  3. COZAAR [Suspect]
     Active Substance: LOSARTAN POTASSIUM
  4. ITB BOLUS [Suspect]
     Active Substance: BACLOFEN
     Dosage: 70/90 UG
  5. GABLOFEN [Suspect]
     Active Substance: BACLOFEN
  6. DILTIAZEM [Suspect]
     Active Substance: DILTIAZEM
  7. HYGROTON [Suspect]
     Active Substance: CHLORTHALIDONE
  8. DANTRIUM [Suspect]
     Active Substance: DANTROLENE SODIUM

REACTIONS (2)
  - Paraesthesia [None]
  - Hypoaesthesia [None]

NARRATIVE: CASE EVENT DATE: 20131223
